FAERS Safety Report 8448169-6 (Version None)
Quarter: 2012Q2

REPORT INFORMATION
  Report Type: 
  Country: None (occurrence: None)
  Receive Date: 20120613
  Receipt Date: 20120529
  Transmission Date: 20120825
  Serious: Yes (Other)
  Sender: FDA-Public Use
  Company Number: 2012P1027781

PATIENT
  Age: 49 Year
  Sex: Female
  Weight: 98.8842 kg

DRUGS (6)
  1. PROMETHAZINE [Suspect]
     Dosage: PO
     Route: 048
  2. SEROQUEL [Concomitant]
  3. LORAZEPAM [Concomitant]
  4. AZITHROMYCIN [Concomitant]
  5. HYDROCORTISONE 1%-P CREAM [Suspect]
     Indication: FUNGAL INFECTION
     Dosage: BID;TOP
     Route: 061
     Dates: start: 20050101, end: 20050101
  6. THYROID TABLET [Concomitant]

REACTIONS (3)
  - GRAND MAL CONVULSION [None]
  - DRUG HYPERSENSITIVITY [None]
  - RASH GENERALISED [None]
